FAERS Safety Report 18631067 (Version 2)
Quarter: 2021Q1

REPORT INFORMATION
  Report Type: Spontaneous
  Country: CH (occurrence: CH)
  Receive Date: 20201217
  Receipt Date: 20210202
  Transmission Date: 20210419
  Serious: Yes (Death, Other)
  Sender: FDA-Public Use
  Company Number: CH-JAZZ-2020-CH-016937

PATIENT
  Age: 29 Year
  Sex: Male

DRUGS (1)
  1. DEFIBROTIDE (NPB) [Suspect]
     Active Substance: DEFIBROTIDE SODIUM
     Indication: VENOOCCLUSIVE DISEASE
     Dosage: UNKNOWN THERAPY DETAILS

REACTIONS (2)
  - Post procedural complication [Unknown]
  - Death [Fatal]
